FAERS Safety Report 22176770 (Version 8)
Quarter: 2025Q1

REPORT INFORMATION
  Report Type: Report from Study
  Country: US (occurrence: US)
  Receive Date: 20230405
  Receipt Date: 20250221
  Transmission Date: 20250409
  Serious: Yes (Hospitalization, Other)
  Sender: TAKEDA
  Company Number: US-PAREXEL-2021-KAM-US003436

PATIENT
  Sex: Male
  Weight: 120 kg

DRUGS (30)
  1. GLASSIA [Suspect]
     Active Substance: .ALPHA.1-PROTEINASE INHIBITOR HUMAN
     Indication: Alpha-1 antitrypsin deficiency
     Dosage: 8000 MILLIGRAM, 1/WEEK
     Dates: start: 20170427
  2. GLASSIA [Suspect]
     Active Substance: .ALPHA.1-PROTEINASE INHIBITOR HUMAN
     Dosage: 8000 MILLIGRAM/KILOGRAM, 1/WEEK
  3. GLASSIA [Suspect]
     Active Substance: .ALPHA.1-PROTEINASE INHIBITOR HUMAN
     Dosage: 8000 MILLIGRAM, 1/WEEK
     Dates: start: 20180228
  4. DIPHENHYDRAMINE [Concomitant]
     Active Substance: DIPHENHYDRAMINE
  5. LIDOCAINE [Concomitant]
     Active Substance: LIDOCAINE
  6. SODIUM CHLORIDE [Concomitant]
     Active Substance: SODIUM CHLORIDE
  7. EPINEPHRINE [Concomitant]
     Active Substance: EPINEPHRINE
  8. MORPHINE [Concomitant]
     Active Substance: MORPHINE
  9. DIAZEPAM [Concomitant]
     Active Substance: DIAZEPAM
  10. SYSTANE (HYPROMELLOSE 2910 (4000 MPA.S)) [Concomitant]
     Active Substance: HYPROMELLOSE 2910 (4000 MPA.S)
  11. OXYGEN [Concomitant]
     Active Substance: OXYGEN
  12. DULERA [Concomitant]
     Active Substance: FORMOTEROL FUMARATE DIHYDRATE\MOMETASONE FUROATE
  13. Amlodipine + atorvastatin [Concomitant]
  14. OMEPRAZOLE [Concomitant]
     Active Substance: OMEPRAZOLE
  15. MORPHINE SULFATE [Concomitant]
     Active Substance: MORPHINE SULFATE
  16. VITAMIN C [Concomitant]
     Active Substance: ASCORBIC ACID
  17. AER [Concomitant]
  18. Lmx [Concomitant]
  19. FOLIC ACID\IRON [Concomitant]
     Active Substance: FOLIC ACID\IRON
  20. ZINC [Concomitant]
     Active Substance: ZINC
  21. DIPHENHYDRAMINE HYDROCHLORIDE [Concomitant]
     Active Substance: DIPHENHYDRAMINE HYDROCHLORIDE
  22. PREDNISONE [Concomitant]
     Active Substance: PREDNISONE
  23. AUGMENTIN [Concomitant]
     Active Substance: AMOXICILLIN\CLAVULANATE POTASSIUM
  24. SPIRIVA RESPIMAT [Concomitant]
     Active Substance: TIOTROPIUM BROMIDE
  25. PROAIR HFA [Concomitant]
     Active Substance: ALBUTEROL SULFATE
  26. GABAPENTIN [Concomitant]
     Active Substance: GABAPENTIN
  27. LASIX [Concomitant]
     Active Substance: FUROSEMIDE
  28. COMBIVENT RESPIMAT [Concomitant]
     Active Substance: ALBUTEROL SULFATE\IPRATROPIUM BROMIDE
  29. ZINC GLUCONATE [Concomitant]
     Active Substance: ZINC GLUCONATE
  30. ELIQUIS [Concomitant]
     Active Substance: APIXABAN

REACTIONS (15)
  - Pulmonary thrombosis [Unknown]
  - Infection [Unknown]
  - Malaise [Unknown]
  - Influenza like illness [Unknown]
  - Multiple allergies [Unknown]
  - Device infusion issue [Unknown]
  - Influenza [Unknown]
  - Oropharyngeal pain [Unknown]
  - COVID-19 [Unknown]
  - Ear disorder [Unknown]
  - Pulmonary function test decreased [Unknown]
  - Insurance issue [Unknown]
  - Product use issue [Unknown]
  - Fatigue [Unknown]
  - Cough [Unknown]
